FAERS Safety Report 9057089 (Version 3)
Quarter: 2013Q2

REPORT INFORMATION
  Report Type: Spontaneous
  Country: US (occurrence: US)
  Receive Date: 20130131
  Receipt Date: 20130614
  Transmission Date: 20140414
  Serious: Yes (Other)
  Sender: FDA-Public Use
  Company Number: US-PFIZER INC-2013033663

PATIENT
  Age: 70 Year
  Sex: Female

DRUGS (2)
  1. PREMARIN [Suspect]
     Dosage: 0.3 MG, 1X/DAY
     Route: 048
     Dates: start: 201202
  2. PREMARIN [Suspect]
     Dosage: UNK
     Dates: start: 201202

REACTIONS (1)
  - Arthropathy [Unknown]
